FAERS Safety Report 13858432 (Version 1)
Quarter: 2017Q3

REPORT INFORMATION
  Report Type: Report from Study
  Country: None (occurrence: PR)
  Receive Date: 20170811
  Receipt Date: 20170811
  Transmission Date: 20171127
  Serious: Yes (Other)
  Sender: FDA-Public Use
  Company Number: PR-ABBVIE-17K-131-2060877-00

PATIENT
  Sex: Female

DRUGS (1)
  1. HUMIRA [Suspect]
     Active Substance: ADALIMUMAB
     Indication: RHEUMATOID ARTHRITIS
     Route: 058
     Dates: start: 20141125, end: 201706

REACTIONS (8)
  - Pain in extremity [Not Recovered/Not Resolved]
  - Joint dislocation [Recovered/Resolved]
  - Procedural hypotension [Not Recovered/Not Resolved]
  - Osteoarthritis [Unknown]
  - Hyperthyroidism [Not Recovered/Not Resolved]
  - Haematoma [Recovering/Resolving]
  - Peripheral swelling [Not Recovered/Not Resolved]
  - Procedural pain [Not Recovered/Not Resolved]
